FAERS Safety Report 8297579-9 (Version None)
Quarter: 2012Q2

REPORT INFORMATION
  Report Type: 
  Country: None (occurrence: None)
  Receive Date: 20120419
  Receipt Date: 20120410
  Transmission Date: 20120825
  Serious: Yes (Other)
  Sender: FDA-Public Use
  Company Number: US-JNJFOC-20111007668

PATIENT
  Sex: Female
  Weight: 66.1 kg

DRUGS (15)
  1. MECLIZINE [Concomitant]
     Route: 048
     Dates: start: 20050101
  2. PRILOSEC [Concomitant]
     Route: 048
     Dates: start: 20080612
  3. GOLIMUMAB [Suspect]
     Route: 058
     Dates: start: 20060707
  4. CELEBREX [Concomitant]
     Route: 048
     Dates: start: 20091022
  5. GOLIMUMAB [Suspect]
     Route: 058
     Dates: end: 20110701
  6. AMOXICILLIN [Concomitant]
     Route: 048
     Dates: start: 20110812, end: 20110821
  7. AMOXICILLIN [Concomitant]
     Route: 048
     Dates: start: 20110804, end: 20110811
  8. FOLIC ACID [Concomitant]
     Route: 048
     Dates: start: 20000406
  9. ULTRAM [Concomitant]
     Route: 048
     Dates: start: 20000503
  10. TRIAMTERENE AND HYDROCHLOROTHIAZIDE [Concomitant]
     Route: 048
     Dates: start: 20050101
  11. GOLIMUMAB [Suspect]
     Indication: RHEUMATOID ARTHRITIS
     Route: 058
     Dates: start: 20110505
  12. LOTREL [Concomitant]
     Route: 048
     Dates: start: 20030828
  13. LOZOL [Concomitant]
     Route: 048
     Dates: start: 20050101
  14. MULTIVITAMINS WITH IRON [Concomitant]
     Route: 048
     Dates: start: 20070213
  15. ASPIRIN [Concomitant]
     Route: 048
     Dates: start: 20100812

REACTIONS (1)
  - HISTOPLASMOSIS [None]
